FAERS Safety Report 22273060 (Version 1)
Quarter: 2023Q2

REPORT INFORMATION
  Report Type: Spontaneous
  Country: FR (occurrence: FR)
  Receive Date: 20230502
  Receipt Date: 20230502
  Transmission Date: 20230722
  Serious: Yes (Other)
  Sender: FDA-Public Use
  Company Number: None

PATIENT
  Age: 55 Year
  Sex: Female

DRUGS (2)
  1. SPRAVATO [Suspect]
     Active Substance: ESKETAMINE
     Indication: Depression
     Dosage: 56MG
     Dates: start: 20230321
  2. LITHIUM [Concomitant]
     Active Substance: LITHIUM

REACTIONS (5)
  - Hallucination [Recovered/Resolved]
  - Depersonalisation/derealisation disorder [Recovered/Resolved]
  - Panic attack [Recovered/Resolved]
  - Derealisation [Recovered/Resolved]
  - Visual impairment [Recovered/Resolved]

NARRATIVE: CASE EVENT DATE: 20230321
